FAERS Safety Report 14962768 (Version 1)
Quarter: 2018Q2

REPORT INFORMATION
  Report Type: Spontaneous
  Country: PT (occurrence: PT)
  Receive Date: 20180601
  Receipt Date: 20180601
  Transmission Date: 20180711
  Serious: Yes (Hospitalization)
  Sender: FDA-Public Use
  Company Number: PT-AUROBINDO-AUR-APL-2018-028244

PATIENT
  Age: 56 Year
  Sex: Male

DRUGS (4)
  1. FLUCLOXACILIN [Suspect]
     Active Substance: FLUCLOXACILLIN
     Indication: PRODUCT USED FOR UNKNOWN INDICATION
     Dosage: 500 MILLIGRAM, TWO TIMES A DAY
     Route: 065
  2. LINEZOLID. [Suspect]
     Active Substance: LINEZOLID
     Indication: PRODUCT USED FOR UNKNOWN INDICATION
     Dosage: 600 MILLIGRAM, TWO TIMES A DAY
     Route: 065
  3. PREDNISOLONE. [Suspect]
     Active Substance: PREDNISOLONE
     Indication: THROMBOCYTOPENIA
     Dosage: 40 MILLIGRAM, ONCE A DAY
     Route: 065
  4. CYCLOSPORINE. [Suspect]
     Active Substance: CYCLOSPORINE
     Indication: THROMBOCYTOPENIA
     Dosage: 125 MILLIGRAM, TWO TIMES A DAY
     Route: 065

REACTIONS (8)
  - Complications of transplanted kidney [Unknown]
  - Staphylococcal infection [Unknown]
  - Hypocomplementaemia [Unknown]
  - Urine output decreased [Unknown]
  - Hypertension [Unknown]
  - Oedema peripheral [Unknown]
  - Pyelonephritis [Unknown]
  - Proteinuria [Unknown]
